FAERS Safety Report 14612106 (Version 1)
Quarter: 2018Q1

REPORT INFORMATION
  Report Type: Spontaneous
  Country: US (occurrence: US)
  Receive Date: 20180307
  Receipt Date: 20180307
  Transmission Date: 20180509
  Serious: Yes (Disabling)
  Sender: FDA-Public Use
  Company Number: None

PATIENT
  Age: 43 Year
  Sex: Female
  Weight: 60.75 kg

DRUGS (2)
  1. VENTO LINE [Concomitant]
  2. LEVAQUIN [Suspect]
     Active Substance: LEVOFLOXACIN
     Indication: SINUSITIS
     Route: 048

REACTIONS (5)
  - Nervous system disorder [None]
  - Rash [None]
  - Swelling [None]
  - Drug hypersensitivity [None]
  - Tendon disorder [None]

NARRATIVE: CASE EVENT DATE: 20080808
